FAERS Safety Report 9840741 (Version 1)
Quarter: 2013Q4

REPORT INFORMATION
  Report Type: Spontaneous
  Country: US (occurrence: None)
  Receive Date: 20131211
  Receipt Date: 20131211
  Transmission Date: 20140711
  Serious: Yes (Other)
  Sender: FDA-Public Use
  Company Number: SPV1-2012-01174

PATIENT
  Age: 11 Year
  Sex: Female

DRUGS (1)
  1. VYVANSE [Suspect]
     Indication: PRODUCT USED FOR UNKNOWN INDICATION
     Dosage: 1 UNK, 1X/DAY

REACTIONS (3)
  - Tremor [None]
  - Hallucination [None]
  - Initial insomnia [None]
